FAERS Safety Report 6744678-6 (Version None)
Quarter: 2010Q2

REPORT INFORMATION
  Report Type: 
  Country: None (occurrence: None)
  Receive Date: 20100527
  Receipt Date: 20100520
  Transmission Date: 20101027
  Serious: Yes (Hospitalization, Other)
  Sender: FDA-Public Use
  Company Number: PHHO2009NL02357

PATIENT
  Sex: Female
  Weight: 82.2 kg

DRUGS (2)
  1. CERTICAN [Suspect]
     Indication: RENAL TRANSPLANT
     Dosage: UNK
     Route: 048
     Dates: start: 20080508, end: 20090227
  2. NEORAL [Suspect]
     Indication: RENAL TRANSPLANT
     Dosage: 2X25MG
     Route: 048
     Dates: start: 20080508

REACTIONS (7)
  - ABASIA [None]
  - CLOSTRIDIUM COLITIS [None]
  - CYTOMEGALOVIRUS COLITIS [None]
  - DIARRHOEA [None]
  - INTESTINAL ULCER [None]
  - PULMONARY EMBOLISM [None]
  - PYREXIA [None]
